FAERS Safety Report 19330750 (Version 1)
Quarter: 2021Q2

REPORT INFORMATION
  Report Type: Spontaneous
  Country: IN (occurrence: IN)
  Receive Date: 20210528
  Receipt Date: 20210528
  Transmission Date: 20210717
  Serious: Yes (Other)
  Sender: FDA-Public Use
  Company Number: IN-LUPIN PHARMACEUTICALS INC.-2021-08103

PATIENT
  Age: 20 Year
  Sex: Male

DRUGS (4)
  1. AZITHROMYCIN TABLETS [Suspect]
     Active Substance: AZITHROMYCIN ANHYDROUS
     Indication: COVID-19
     Dosage: 500 MILLIGRAM, QD, ON DAY 1
     Route: 065
     Dates: start: 2020, end: 2020
  2. HYDROXYCHLOROQUINE SULFATE TABLETS [Suspect]
     Active Substance: HYDROXYCHLOROQUINE SULFATE
     Dosage: 200 MILLIGRAM, ON DAY 2?5
     Route: 065
     Dates: start: 2020, end: 2020
  3. AZITHROMYCIN TABLETS [Suspect]
     Active Substance: AZITHROMYCIN ANHYDROUS
     Dosage: 250 MILLIGRAM, QD, ON DAY 2?5
     Route: 065
     Dates: start: 2020, end: 2020
  4. HYDROXYCHLOROQUINE SULFATE TABLETS [Suspect]
     Active Substance: HYDROXYCHLOROQUINE SULFATE
     Indication: COVID-19
     Dosage: 400 MILLIGRAM, ON DAY 1
     Route: 065
     Dates: start: 2020, end: 2020

REACTIONS (1)
  - Off label use [Unknown]

NARRATIVE: CASE EVENT DATE: 2020
